FAERS Safety Report 6713269-5 (Version None)
Quarter: 2010Q2

REPORT INFORMATION
  Report Type: 
  Country: None (occurrence: None)
  Receive Date: 20100505
  Receipt Date: 20100505
  Transmission Date: 20101027
  Serious: Yes (Hospitalization)
  Sender: FDA-Public Use
  Company Number: None

PATIENT
  Sex: Female
  Weight: 47.2 kg

DRUGS (3)
  1. FLUOROURACIL [Suspect]
     Dosage: 1450 MG
  2. CISPLATIN [Suspect]
     Dosage: 109 MG
  3. ERBITUX [Suspect]
     Dosage: 942.5 MG

REACTIONS (14)
  - ASTHENIA [None]
  - BLOOD PRESSURE DECREASED [None]
  - DEHYDRATION [None]
  - DIARRHOEA [None]
  - DYSARTHRIA [None]
  - ESCHERICHIA BACTERAEMIA [None]
  - FALL [None]
  - FATIGUE [None]
  - HEAD INJURY [None]
  - HYPOKALAEMIA [None]
  - HYPOMAGNESAEMIA [None]
  - HYPONATRAEMIA [None]
  - INCONTINENCE [None]
  - LYMPHOPENIA [None]
